FAERS Safety Report 11255641 (Version 1)
Quarter: 2015Q3

REPORT INFORMATION
  Report Type: Spontaneous
  Country: JP (occurrence: JP)
  Receive Date: 20150709
  Receipt Date: 20150709
  Transmission Date: 20151125
  Serious: Yes (Other)
  Sender: FDA-Public Use
  Company Number: JP-PFIZER INC-2015224265

PATIENT
  Sex: Female

DRUGS (2)
  1. LYRICA [Suspect]
     Active Substance: PREGABALIN
     Dosage: UNK
     Route: 048
  2. ALPROSTADIL. [Suspect]
     Active Substance: ALPROSTADIL
     Dosage: UNK
     Route: 042

REACTIONS (1)
  - Nipple exudate bloody [Unknown]
